FAERS Safety Report 21773824 (Version 1)
Quarter: 2022Q4

REPORT INFORMATION
  Report Type: Spontaneous
  Country: IT (occurrence: IT)
  Receive Date: 20221223
  Receipt Date: 20221223
  Transmission Date: 20230113
  Serious: Yes (Hospitalization)
  Sender: FDA-Public Use
  Company Number: IT-LUNDBECK-DKLU3055846

PATIENT
  Age: 74 Year
  Sex: Male

DRUGS (24)
  1. CITALOPRAM [Suspect]
     Active Substance: CITALOPRAM HYDROBROMIDE
     Indication: Apathy
     Dosage: 20 MG
     Route: 065
  2. CITALOPRAM [Suspect]
     Active Substance: CITALOPRAM HYDROBROMIDE
     Indication: Depressed mood
     Dosage: 30 MG, UNKNOWN
     Route: 065
  3. CITALOPRAM [Suspect]
     Active Substance: CITALOPRAM HYDROBROMIDE
     Indication: Feelings of worthlessness
  4. CITALOPRAM [Suspect]
     Active Substance: CITALOPRAM HYDROBROMIDE
     Indication: Obsessive rumination
  5. CITALOPRAM [Suspect]
     Active Substance: CITALOPRAM HYDROBROMIDE
     Indication: Anxiety
  6. CITALOPRAM [Suspect]
     Active Substance: CITALOPRAM HYDROBROMIDE
     Indication: Somatic dysfunction
  7. LORAZEPAM [Suspect]
     Active Substance: LORAZEPAM
     Indication: Anxiety
     Dosage: 2.5 MG
     Route: 065
  8. LORAZEPAM [Suspect]
     Active Substance: LORAZEPAM
     Indication: Depressed mood
  9. LORAZEPAM [Suspect]
     Active Substance: LORAZEPAM
     Indication: Somatic dysfunction
  10. LORAZEPAM [Suspect]
     Active Substance: LORAZEPAM
     Indication: Feelings of worthlessness
  11. LORAZEPAM [Suspect]
     Active Substance: LORAZEPAM
     Indication: Apathy
  12. LORAZEPAM [Suspect]
     Active Substance: LORAZEPAM
     Indication: Obsessive rumination
  13. QUETIAPINE [Suspect]
     Active Substance: QUETIAPINE
     Indication: Somatic dysfunction
     Dosage: 75 MG
     Route: 065
  14. QUETIAPINE [Suspect]
     Active Substance: QUETIAPINE
     Indication: Obsessive rumination
     Dosage: 100 MG
     Route: 065
  15. QUETIAPINE [Suspect]
     Active Substance: QUETIAPINE
     Indication: Anxiety
  16. QUETIAPINE [Suspect]
     Active Substance: QUETIAPINE
     Indication: Depressed mood
  17. QUETIAPINE [Suspect]
     Active Substance: QUETIAPINE
     Indication: Feelings of worthlessness
  18. QUETIAPINE [Suspect]
     Active Substance: QUETIAPINE
     Indication: Apathy
  19. VORTIOXETINE [Suspect]
     Active Substance: VORTIOXETINE
     Indication: Anxiety
     Dosage: UNK
     Route: 065
  20. VORTIOXETINE [Suspect]
     Active Substance: VORTIOXETINE
     Indication: Apathy
  21. VORTIOXETINE [Suspect]
     Active Substance: VORTIOXETINE
     Indication: Somatic dysfunction
  22. VORTIOXETINE [Suspect]
     Active Substance: VORTIOXETINE
     Indication: Feelings of worthlessness
  23. VORTIOXETINE [Suspect]
     Active Substance: VORTIOXETINE
     Indication: Depressed mood
  24. VORTIOXETINE [Suspect]
     Active Substance: VORTIOXETINE
     Indication: Obsessive rumination

REACTIONS (3)
  - Negativism [Recovered/Resolved]
  - Condition aggravated [Recovered/Resolved]
  - Drug ineffective [Unknown]
